FAERS Safety Report 5295956-1 (Version None)
Quarter: 2007Q2

REPORT INFORMATION
  Report Type: 
  Country: None (occurrence: None)
  Receive Date: 20070413
  Receipt Date: 20070402
  Transmission Date: 20071010
  Serious: Yes (Other)
  Sender: FDA-Public Use
  Company Number: GBWYE318203APR07

PATIENT
  Age: 75 Year
  Sex: Male
  Weight: 96 kg

DRUGS (4)
  1. ENBREL [Suspect]
     Indication: RHEUMATOID ARTHRITIS
     Route: 058
     Dates: start: 20040801
  2. ATENOLOL [Concomitant]
     Route: 048
  3. CO-CODAMOL [Concomitant]
     Route: 048
  4. ARTHROTEC [Concomitant]
     Route: 048

REACTIONS (1)
  - VITH NERVE PARALYSIS [None]
